FAERS Safety Report 6686483-5 (Version None)
Quarter: 2010Q2

REPORT INFORMATION
  Report Type: 
  Country: None (occurrence: None)
  Receive Date: 20100419
  Receipt Date: 20100408
  Transmission Date: 20101027
  Serious: Yes (Hospitalization, Other)
  Sender: FDA-Public Use
  Company Number: JP-ROCHE-695332

PATIENT
  Sex: Female
  Weight: 64 kg

DRUGS (4)
  1. PEGASYS [Suspect]
     Dosage: FORM: INJECTION
     Route: 058
     Dates: start: 20090610, end: 20100210
  2. COPEGUS [Suspect]
     Route: 048
     Dates: start: 20090610, end: 20100223
  3. VOLTAREN [Concomitant]
     Route: 048
     Dates: start: 20090610
  4. MUCOSTA [Concomitant]
     Route: 048
     Dates: start: 20090610

REACTIONS (8)
  - ACTIVATED PARTIAL THROMBOPLASTIN TIME PROLONGED [None]
  - BLOOD ALBUMIN DECREASED [None]
  - BLOOD CHOLINESTERASE DECREASED [None]
  - DISSEMINATED INTRAVASCULAR COAGULATION [None]
  - PROTHROMBIN TIME PROLONGED [None]
  - PYREXIA [None]
  - SPLENOMEGALY [None]
  - THROMBOCYTOPENIA [None]
